FAERS Safety Report 17612739 (Version 4)
Quarter: 2020Q2

REPORT INFORMATION
  Report Type: Spontaneous
  Country: US (occurrence: US)
  Receive Date: 20200401
  Receipt Date: 20200626
  Transmission Date: 20200713
  Serious: Yes (Hospitalization)
  Sender: FDA-Public Use
  Company Number: US-ACTELION-A-NJ2020-203698

PATIENT
  Age: 30 Year
  Sex: Female
  Weight: 49.89 kg

DRUGS (4)
  1. VELETRI [Suspect]
     Active Substance: EPOPROSTENOL
     Indication: PULMONARY ARTERIAL HYPERTENSION
     Dosage: 15.25 NG/KG, PER MIN
     Route: 042
  2. VELETRI [Suspect]
     Active Substance: EPOPROSTENOL
     Dosage: 11 NG/KG, PER MIN
     Route: 042
  3. LETAIRIS [Concomitant]
     Active Substance: AMBRISENTAN
  4. TADALAFIL. [Concomitant]
     Active Substance: TADALAFIL

REACTIONS (9)
  - Skin irritation [Recovered/Resolved]
  - Catheter management [Recovered/Resolved]
  - Headache [Unknown]
  - Dysentery [Unknown]
  - Abdominal discomfort [Unknown]
  - Vascular device infection [Unknown]
  - Gastrointestinal disorder [Unknown]
  - Hypersensitivity [Recovered/Resolved]
  - Pain in jaw [Unknown]

NARRATIVE: CASE EVENT DATE: 20200608
